FAERS Safety Report 17060065 (Version 1)
Quarter: 2019Q4

REPORT INFORMATION
  Report Type: Spontaneous
  Country: US (occurrence: US)
  Receive Date: 20191121
  Receipt Date: 20191121
  Transmission Date: 20200122
  Serious: No
  Sender: FDA-Public Use
  Company Number: US-NOVOPROD-656558

PATIENT
  Age: 63 Year
  Sex: Female

DRUGS (1)
  1. NOVOLOG [Suspect]
     Active Substance: INSULIN ASPART
     Indication: PRODUCT USED FOR UNKNOWN INDICATION
     Dosage: 15 UNITS WITH MEALS
     Route: 058
     Dates: start: 20190331

REACTIONS (4)
  - Back pain [Unknown]
  - Headache [Unknown]
  - Blood glucose increased [Unknown]
  - Dizziness [Unknown]
